FAERS Safety Report 5273802-X (Version None)
Quarter: 2007Q1

REPORT INFORMATION
  Report Type: 
  Country: None (occurrence: None)
  Receive Date: 20070321
  Receipt Date: 20070321
  Transmission Date: 20070707
  Serious: Yes (Hospitalization)
  Sender: FDA-Public Use
  Company Number: None

PATIENT
  Age: 57 Year
  Sex: Male
  Weight: 73.0291 kg

DRUGS (1)
  1. CARBOPLATIN [Suspect]
     Indication: NON-SMALL CELL LUNG CANCER
     Dosage: 495 MG ONCE IV
     Route: 042

REACTIONS (6)
  - ANXIETY [None]
  - CHEST PAIN [None]
  - COUGH [None]
  - DYSPNOEA [None]
  - HYPERHIDROSIS [None]
  - INFUSION RELATED REACTION [None]
